FAERS Safety Report 25444505 (Version 2)
Quarter: 2025Q3

REPORT INFORMATION
  Report Type: Report from Study
  Country: US (occurrence: US)
  Receive Date: 20250617
  Receipt Date: 20250701
  Transmission Date: 20251020
  Serious: Yes (Hospitalization)
  Sender: UCB
  Company Number: US-UCBSA-2025035078

PATIENT
  Age: 35 Year
  Sex: Male
  Weight: 99.7 kg

DRUGS (1)
  1. BIMEKIZUMAB [Suspect]
     Active Substance: BIMEKIZUMAB
     Indication: Hidradenitis
     Dosage: 320 MILLIGRAM, EV 2 WEEKS(QOW)
     Route: 058
     Dates: start: 20250521, end: 20250602

REACTIONS (3)
  - Diabetic ketoacidosis [Recovered/Resolved]
  - Influenza [Recovered/Resolved with Sequelae]
  - Decreased immune responsiveness [Unknown]

NARRATIVE: CASE EVENT DATE: 20250602
